FAERS Safety Report 23082623 (Version 2)
Quarter: 2023Q4

REPORT INFORMATION
  Report Type: Spontaneous
  Country: US (occurrence: None)
  Receive Date: 20231019
  Receipt Date: 20231214
  Transmission Date: 20240110
  Serious: Yes (Hospitalization)
  Sender: FDA-Public Use
  Company Number: US-ROCHE-3433659

PATIENT
  Age: 26 Year
  Sex: Male

DRUGS (1)
  1. HEMLIBRA [Suspect]
     Active Substance: EMICIZUMAB-KXWH
     Indication: Factor VIII deficiency
     Dosage: STRENGTH- 150 MG/ML
     Route: 058
     Dates: start: 202308

REACTIONS (2)
  - Haemorrhage [Unknown]
  - Haematochezia [Unknown]

NARRATIVE: CASE EVENT DATE: 20230925
